FAERS Safety Report 5261228-4 (Version None)
Quarter: 2007Q1

REPORT INFORMATION
  Report Type: 
  Country: None (occurrence: None)
  Receive Date: 20070309
  Receipt Date: 20070226
  Transmission Date: 20070707
  Serious: Yes (Hospitalization)
  Sender: FDA-Public Use
  Company Number: JP-PFIZER INC-2007016053

PATIENT
  Sex: Female

DRUGS (2)
  1. CABASER [Suspect]
     Indication: PARKINSON'S DISEASE
     Route: 048
  2. MENESIT [Concomitant]
     Route: 048

REACTIONS (2)
  - RESPIRATORY ARREST [None]
  - RESPIRATORY RATE DECREASED [None]
